FAERS Safety Report 25123492 (Version 1)
Quarter: 2025Q1

REPORT INFORMATION
  Report Type: Report from Study
  Country: US (occurrence: US)
  Receive Date: 20250326
  Receipt Date: 20250326
  Transmission Date: 20250409
  Serious: Yes (Hospitalization)
  Sender: ABBVIE
  Company Number: US-ABBVIE-6190915

PATIENT
  Sex: Female

DRUGS (1)
  1. HUMIRA [Suspect]
     Active Substance: ADALIMUMAB
     Indication: Product used for unknown indication
     Route: 058
     Dates: start: 20240624, end: 20250204

REACTIONS (6)
  - Ileostomy [Unknown]
  - Inflammation [Unknown]
  - Fatigue [Unknown]
  - Abscess intestinal [Unknown]
  - Fistula [Unknown]
  - Drug ineffective [Unknown]
